FAERS Safety Report 14741786 (Version 3)
Quarter: 2018Q2

REPORT INFORMATION
  Report Type: Report from Study
  Country: US (occurrence: US)
  Receive Date: 20180410
  Receipt Date: 20180507
  Transmission Date: 20180711
  Serious: Yes (Other)
  Sender: FDA-Public Use
  Company Number: US-GILEAD-2018-0331258

PATIENT
  Age: 90 Year
  Sex: Male

DRUGS (5)
  1. IDELALISIB [Suspect]
     Active Substance: IDELALISIB
     Indication: NON-HODGKIN^S LYMPHOMA
     Dosage: 100 MG, BID
     Route: 048
     Dates: start: 20160701
  2. IDELALISIB [Suspect]
     Active Substance: IDELALISIB
     Indication: LEUKAEMIA
     Dosage: 100 MG, QD
     Route: 048
     Dates: start: 20170329
  3. IDELALISIB [Suspect]
     Active Substance: IDELALISIB
     Dosage: 100 MG, BID
     Route: 048
     Dates: start: 20180410
  4. IDELALISIB [Suspect]
     Active Substance: IDELALISIB
     Dosage: 100 MG, QD
     Route: 048
     Dates: start: 201803
  5. IDELALISIB [Suspect]
     Active Substance: IDELALISIB
     Dosage: 100 MG, BID
     Route: 048
     Dates: end: 20180501

REACTIONS (7)
  - Colon cancer [Unknown]
  - Inguinal mass [Recovering/Resolving]
  - Fatigue [Not Recovered/Not Resolved]
  - Disease progression [Not Recovered/Not Resolved]
  - Cancer surgery [Unknown]
  - Diarrhoea [Not Recovered/Not Resolved]
  - Asthenia [Not Recovered/Not Resolved]

NARRATIVE: CASE EVENT DATE: 20160701
